FAERS Safety Report 5894411-5 (Version None)
Quarter: 2008Q3

REPORT INFORMATION
  Report Type: 
  Country: None (occurrence: None)
  Receive Date: 20080922
  Receipt Date: 20080806
  Transmission Date: 20090109
  Serious: Yes (Hospitalization)
  Sender: FDA-Public Use
  Company Number: SPV1-2008-01664

PATIENT
  Age: 32 Year
  Sex: Male
  Weight: 53.5 kg

DRUGS (3)
  1. ELAPRASE [Suspect]
     Indication: MUCOPOLYSACCHARIDOSIS II
     Dosage: 27.3 MG, 1X/WEEK, IV DRIP
     Route: 042
     Dates: start: 20070911
  2. VASOTEC /00574902/ (ENALAPRIL MALEATE) [Concomitant]
  3. XANAX [Concomitant]

REACTIONS (4)
  - DRUG DOSE OMISSION [None]
  - HALLUCINATION [None]
  - PARANOIA [None]
  - PSYCHOTIC DISORDER [None]
